FAERS Safety Report 17325102 (Version 1)
Quarter: 2020Q1

REPORT INFORMATION
  Report Type: Spontaneous
  Country: ES (occurrence: ES)
  Receive Date: 20200127
  Receipt Date: 20200127
  Transmission Date: 20200409
  Serious: Yes (Hospitalization)
  Sender: FDA-Public Use
  Company Number: ES-ACCORD-170787

PATIENT
  Age: 57 Year
  Sex: Male

DRUGS (5)
  1. CEFOTAXIME [Concomitant]
     Active Substance: CEFOTAXIME SODIUM
     Indication: MENINGORADICULITIS
     Route: 042
     Dates: start: 20190429, end: 20190503
  2. LEVETIRACETAM. [Suspect]
     Active Substance: LEVETIRACETAM
     Indication: SEIZURE
     Route: 042
     Dates: start: 20190429, end: 20190506
  3. ACICLOVIR [Interacting]
     Active Substance: ACYCLOVIR
     Indication: MENINGORADICULITIS
     Route: 042
     Dates: start: 20190429, end: 20190506
  4. AMPICILLIN [Interacting]
     Active Substance: AMPICILLIN
     Indication: MENINGORADICULITIS
     Route: 042
     Dates: start: 20190429, end: 20190502
  5. DEXAMETHASONE. [Concomitant]
     Active Substance: DEXAMETHASONE
     Indication: SEIZURE
     Route: 042
     Dates: start: 20190429, end: 20190506

REACTIONS (3)
  - Acute kidney injury [Recovered/Resolved]
  - Drug interaction [Unknown]
  - Off label use [Unknown]

NARRATIVE: CASE EVENT DATE: 20190506
